FAERS Safety Report 8974759 (Version 1)
Quarter: 2012Q4

REPORT INFORMATION
  Report Type: 
  Country: EC (occurrence: EC)
  Receive Date: 20121219
  Receipt Date: 20121219
  Transmission Date: 20130627
  Serious: Yes (Hospitalization, Other)
  Sender: FDA-Public Use
  Company Number: PHHY2012EC115065

PATIENT
  Age: 78 Year
  Sex: Female

DRUGS (4)
  1. ACLASTA [Suspect]
     Indication: OSTEOPOROSIS
     Dosage: 5 mg, once a year
     Route: 042
     Dates: start: 20110411
  2. VASOCAL [Concomitant]
     Indication: HYPERTENSION
     Dosage: UNK UKN, QD
     Route: 048
     Dates: start: 20121109
  3. LIPITOR [Concomitant]
     Indication: HYPERCHOLESTEROLAEMIA
     Dosage: 10 mg, QD
     Route: 048
     Dates: start: 20121109
  4. ANSIETIL [Concomitant]
     Indication: ANXIETY
     Dosage: 30 mg, QD
     Route: 048
     Dates: start: 20121109

REACTIONS (15)
  - Embolic stroke [Unknown]
  - Monoparesis [Recovering/Resolving]
  - Speech disorder [Recovering/Resolving]
  - Aphasia [Unknown]
  - Coordination abnormal [Unknown]
  - Gait disturbance [Unknown]
  - Confusional state [Unknown]
  - Disorientation [Unknown]
  - Loss of consciousness [Unknown]
  - Dysarthria [Unknown]
  - Headache [Unknown]
  - Fatigue [Recovering/Resolving]
  - Dizziness [Unknown]
  - Fall [Unknown]
  - Blood pressure increased [Unknown]
